FAERS Safety Report 22814924 (Version 35)
Quarter: 2025Q1

REPORT INFORMATION
  Report Type: Report from Study
  Country: CO (occurrence: CO)
  Receive Date: 20230811
  Receipt Date: 20250318
  Transmission Date: 20250409
  Serious: Yes (Other)
  Sender: TAKEDA
  Company Number: CO-TAKEDA-2022TUS089449

PATIENT
  Age: 48 Year
  Sex: Female
  Weight: 72 kg

DRUGS (10)
  1. ICATIBANT [Suspect]
     Active Substance: ICATIBANT ACETATE
     Indication: Hereditary angioedema
  2. ICATIBANT [Suspect]
     Active Substance: ICATIBANT ACETATE
  3. ICATIBANT [Suspect]
     Active Substance: ICATIBANT ACETATE
  4. ICATIBANT [Suspect]
     Active Substance: ICATIBANT ACETATE
  5. TAKHZYRO [Suspect]
     Active Substance: LANADELUMAB-FLYO
     Indication: Hereditary angioedema
     Dosage: 300 MILLIGRAM, 2/MONTH
     Dates: start: 20220214
  6. TAKHZYRO [Suspect]
     Active Substance: LANADELUMAB-FLYO
     Dosage: UNK UNK, 2/MONTH
     Dates: start: 20221214
  7. TAKHZYRO [Suspect]
     Active Substance: LANADELUMAB-FLYO
     Dosage: 300 MILLIGRAM, 2/WEEK
  8. TAKHZYRO [Suspect]
     Active Substance: LANADELUMAB-FLYO
  9. TAKHZYRO [Suspect]
     Active Substance: LANADELUMAB-FLYO
     Dosage: 300 MILLIGRAM, 2/MONTH
  10. TAKHZYRO [Suspect]
     Active Substance: LANADELUMAB-FLYO
     Dosage: 300 MILLIGRAM, Q2WEEKS

REACTIONS (10)
  - Hereditary angioedema [Recovered/Resolved]
  - Weight decreased [Recovered/Resolved]
  - Insurance issue [Not Recovered/Not Resolved]
  - Treatment noncompliance [Not Recovered/Not Resolved]
  - Product availability issue [Unknown]
  - Product use issue [Unknown]
  - Erythema [Not Recovered/Not Resolved]
  - Inappropriate schedule of product administration [Unknown]
  - Product prescribing issue [Unknown]
  - Product dose omission issue [Unknown]

NARRATIVE: CASE EVENT DATE: 20221213
